FAERS Safety Report 9399139 (Version 1)
Quarter: 2013Q3

REPORT INFORMATION
  Report Type: Spontaneous
  Country: IT (occurrence: None)
  Receive Date: 20130709
  Receipt Date: 20130709
  Transmission Date: 20140515
  Serious: Yes (Other)
  Sender: FDA-Public Use
  Company Number: AUR-APL-2013-05755

PATIENT
  Age: 85 Year
  Sex: Female

DRUGS (5)
  1. CARVEDILOL (CARVEDILOL) [Suspect]
     Indication: PRODUCT USED FOR UNKNOWN INDICATION
     Dosage: 1 DF, 1 IN 1 D, ORAL
     Route: 048
     Dates: start: 20130101, end: 20130528
  2. TRAMADOL [Suspect]
     Indication: PAIN
     Dosage: 1 DF,  1 DF IN 1 D, ORAL
     Route: 048
     Dates: start: 20130512, end: 20130520
  3. BLOPRESS (CANDESARTAN CILEXETIL) [Suspect]
     Indication: PRODUCT USED FOR UNKNOWN INDICATION
     Dosage: 1 DF (1 DF, 1 IN 1 D), ORAL
     Route: 048
     Dates: start: 20130101, end: 20130528
  4. ASCRIPTIN (ASCRIPTIN) [Concomitant]
  5. LYRICA (PREGABALIN) [Concomitant]

REACTIONS (3)
  - Bradycardia [None]
  - Orthostatic hypotension [None]
  - Presyncope [None]
